FAERS Safety Report 8212057-0 (Version None)
Quarter: 2012Q1

REPORT INFORMATION
  Report Type: 
  Country: None (occurrence: None)
  Receive Date: 20120315
  Receipt Date: 20120306
  Transmission Date: 20120608
  Serious: Yes (Hospitalization)
  Sender: FDA-Public Use
  Company Number: DE-ROCHE-1046709

PATIENT
  Sex: Female
  Weight: 6.2 kg

DRUGS (1)
  1. LARIAM [Suspect]
     Indication: MALARIA
     Route: 048

REACTIONS (1)
  - ANAPHYLACTIC SHOCK [None]
